FAERS Safety Report 21859583 (Version 1)
Quarter: 2023Q1

REPORT INFORMATION
  Report Type: Spontaneous
  Country: AR (occurrence: AR)
  Receive Date: 20230113
  Receipt Date: 20230113
  Transmission Date: 20230417
  Serious: Yes (Disabling)
  Sender: FDA-Public Use
  Company Number: AR-ROCHE-3256586

PATIENT

DRUGS (5)
  1. CLONAZEPAM [Suspect]
     Active Substance: CLONAZEPAM
     Indication: Insomnia
     Dosage: SPORADIC
  2. OCREVUS [Suspect]
     Active Substance: OCRELIZUMAB
     Indication: Primary progressive multiple sclerosis
     Dosage: FIRST INFUSION OF OCRELIZUMAB IN 2020
     Dates: start: 2020
  3. OCREVUS [Suspect]
     Active Substance: OCRELIZUMAB
     Indication: Primary progressive multiple sclerosis
     Dosage: SECOND INFUSION IN 2022
     Dates: start: 2022
  4. TAMSULOSIN [Concomitant]
     Active Substance: TAMSULOSIN
     Dosage: DAILY DOSE: 0.4 MILLIGRAM
  5. FLUOXETINE [Concomitant]
     Active Substance: FLUOXETINE HYDROCHLORIDE
     Dosage: DAILY DOSE: 20 MILLIGRAM

REACTIONS (2)
  - Disability [Unknown]
  - Product use in unapproved indication [Unknown]
